FAERS Safety Report 6773967-4 (Version None)
Quarter: 2010Q2

REPORT INFORMATION
  Report Type: 
  Country: None (occurrence: None)
  Receive Date: 20100617
  Receipt Date: 20100610
  Transmission Date: 20101027
  Serious: Yes (Hospitalization, Other)
  Sender: FDA-Public Use
  Company Number: BR-ABBOTT-08P-020-0492611-00

PATIENT
  Sex: Female

DRUGS (17)
  1. HUMIRA [Suspect]
     Indication: RHEUMATOID ARTHRITIS
     Route: 058
     Dates: start: 20080901, end: 20100101
  2. HUMIRA [Suspect]
     Dates: start: 20100101
  3. LASIX [Concomitant]
     Indication: CARDIAC DISORDER
     Route: 048
  4. LASIX [Concomitant]
     Indication: HYPERTENSION
  5. CAPTOPRIL [Concomitant]
     Indication: HYPERTENSION
     Route: 048
     Dates: start: 19960101
  6. CLEZAC [Concomitant]
     Indication: DRUG USE FOR UNKNOWN INDICATION
  7. TRAZODONE HYDROCHLORIDE [Concomitant]
     Indication: SLEEP DISORDER THERAPY
     Route: 048
  8. ASPIRIN [Concomitant]
     Indication: CARDIAC DISORDER
     Route: 048
     Dates: start: 19960101
  9. ASPIRIN [Concomitant]
     Indication: ANTICOAGULANT THERAPY
     Route: 048
     Dates: start: 20000101
  10. CARBAMAZEPINE [Concomitant]
     Indication: EPILEPSY
     Route: 048
     Dates: start: 20000101
  11. CARBAMAZEPINE [Concomitant]
     Indication: CONVULSION
  12. ALDACTONE [Concomitant]
     Indication: HYPERTENSION
     Dosage: 1/2 - 100MG TAB DAILY = 50 MG DAILY
  13. ALDACTONE [Concomitant]
     Indication: CARDIAC DISORDER
  14. METOPROLOL SUCCINATE [Concomitant]
     Indication: HYPERTENSION
     Route: 048
  15. CIPROFLOXACIN [Concomitant]
     Indication: ANTIBIOTIC PROPHYLAXIS
  16. DESOGESTREL [Concomitant]
     Indication: CARDIAC DISORDER
     Route: 048
     Dates: start: 20000101
  17. HYDROCHLOROTHIAZIDE [Concomitant]
     Indication: CARDIAC DISORDER
     Route: 048
     Dates: start: 20000101

REACTIONS (12)
  - ABASIA [None]
  - ASTHENIA [None]
  - BLOOD CHOLESTEROL ABNORMAL [None]
  - BLOOD SODIUM DECREASED [None]
  - CONSTIPATION [None]
  - DYSSTASIA [None]
  - EPILEPSY [None]
  - ERYTHEMA [None]
  - FALL [None]
  - MASS [None]
  - MEMORY IMPAIRMENT [None]
  - NERVOUS SYSTEM DISORDER [None]
